FAERS Safety Report 24837186 (Version 1)
Quarter: 2025Q1

REPORT INFORMATION
  Report Type: Spontaneous
  Country: US (occurrence: None)
  Receive Date: 20250113
  Receipt Date: 20250113
  Transmission Date: 20250409
  Serious: No
  Sender: FDA-CTU
  Company Number: None

PATIENT
  Sex: Male

DRUGS (10)
  1. ACTEMRA [Suspect]
     Active Substance: TOCILIZUMAB
     Indication: Rheumatoid arthritis
     Route: 058
     Dates: start: 20240319
  2. ENTRESTO [Concomitant]
     Active Substance: SACUBITRIL\VALSARTAN
  3. FEXOFENADINE HYDROCHLORIDE [Concomitant]
     Active Substance: FEXOFENADINE HYDROCHLORIDE
  4. ISOVUE-370 INJ 76?/o [Concomitant]
  5. KENALOG-40 INJ 40MG/ML [Concomitant]
  6. PLAQUENIL [Concomitant]
     Active Substance: HYDROXYCHLOROQUINE SULFATE
  7. PREDNISONE [Concomitant]
     Active Substance: PREDNISONE
  8. READI-CAT 2 SUS BANANA [Concomitant]
  9. SHINGRIX INJ 50/0.5ML [Concomitant]
  10. TYENNE [Concomitant]
     Active Substance: TOCILIZUMAB-AAZG

REACTIONS (5)
  - Pain [None]
  - Drug ineffective [None]
  - Loss of personal independence in daily activities [None]
  - Intentional dose omission [None]
  - Surgery [None]
